FAERS Safety Report 6444126 (Version 4)
Quarter: 2014Q2

REPORT INFORMATION
  Report Type: Report from Study
  Country: US (occurrence: US)
  Receive Date: 20071017
  Receipt Date: 20140502
  Transmission Date: 20141212
  Serious: Yes (Hospitalization, Other)
  Sender: FDA-Public Use
  Company Number: US-BAYER-US-2006-020201

PATIENT
  Age: 52 Year
  Sex: Female

DRUGS (7)
  1. BETASERON [Suspect]
     Indication: MULTIPLE SCLEROSIS
     Route: 058
     Dates: start: 20001019, end: 20050919
  2. BETASERON [Suspect]
     Indication: MULTIPLE SCLEROSIS
     Dosage: 8 MIU, QOD
     Route: 058
     Dates: start: 20051003, end: 20140301
  3. BETASERON [Suspect]
     Indication: MULTIPLE SCLEROSIS
     Dosage: 8 MIU, QOD
     Route: 058
     Dates: start: 20140422
  4. METHADONE [Concomitant]
     Indication: MULTIPLE SCLEROSIS
     Dosage: 10 MG, UNK
     Dates: start: 2005
  5. LYRICA [Concomitant]
     Dosage: AT NIGHT
     Dates: start: 2004, end: 20070115
  6. ASPIRIN [Concomitant]
     Indication: PREMEDICATION
  7. DICLOFENAC [Concomitant]
     Indication: HEADACHE
     Dosage: UNK
     Dates: start: 20140422

REACTIONS (18)
  - Thrombosis [Not Recovered/Not Resolved]
  - Local swelling [Recovered/Resolved]
  - Pain in extremity [Not Recovered/Not Resolved]
  - Contusion [Recovered/Resolved]
  - Fall [Recovering/Resolving]
  - Injection site haemorrhage [Recovering/Resolving]
  - Head injury [Recovering/Resolving]
  - Fall [Recovering/Resolving]
  - Hand fracture [Recovering/Resolving]
  - Facial bones fracture [Recovering/Resolving]
  - Face injury [Recovering/Resolving]
  - Dacryostenosis acquired [Recovering/Resolving]
  - Upper limb fracture [Recovering/Resolving]
  - Fall [None]
  - Limb operation [Not Recovered/Not Resolved]
  - Nerve compression [Not Recovered/Not Resolved]
  - Pain in extremity [Not Recovered/Not Resolved]
  - Eye infection [Not Recovered/Not Resolved]
